FAERS Safety Report 6176458-7 (Version None)
Quarter: 2009Q2

REPORT INFORMATION
  Report Type: 
  Country: None (occurrence: None)
  Receive Date: 20090501
  Receipt Date: 20090317
  Transmission Date: 20091009
  Serious: No
  Sender: FDA-Public Use
  Company Number: US-BAYER-200916028NA

PATIENT
  Sex: Male

DRUGS (2)
  1. AVELOX [Suspect]
     Indication: SINUSITIS
  2. AVELOX [Suspect]

REACTIONS (5)
  - CHILLS [None]
  - COUGH [None]
  - PAIN [None]
  - PYREXIA [None]
  - TREMOR [None]
